FAERS Safety Report 8329388-6 (Version None)
Quarter: 2012Q2

REPORT INFORMATION
  Report Type: 
  Country: None (occurrence: None)
  Receive Date: 20120502
  Receipt Date: 20120501
  Transmission Date: 20120825
  Serious: Yes (Death)
  Sender: FDA-Public Use
  Company Number: US-ROCHE-1030746

PATIENT
  Sex: Male

DRUGS (7)
  1. IRESSA [Concomitant]
     Route: 048
     Dates: start: 20100404
  2. TAGAMET [Concomitant]
     Indication: GASTROOESOPHAGEAL REFLUX DISEASE
     Route: 048
     Dates: start: 20100914
  3. TARCEVA [Suspect]
     Indication: PRODUCT USED FOR UNKNOWN INDICATION
     Route: 048
     Dates: start: 20100401
  4. CELEBREX [Concomitant]
     Route: 048
     Dates: start: 20100914
  5. DECADRON [Concomitant]
     Route: 048
     Dates: start: 20091207
  6. KEPPRA [Concomitant]
     Route: 048
     Dates: start: 20090403
  7. AVASTIN [Suspect]
     Indication: PRODUCT USED FOR UNKNOWN INDICATION

REACTIONS (1)
  - DISEASE PROGRESSION [None]
